FAERS Safety Report 4369424-5 (Version None)
Quarter: 2004Q2

REPORT INFORMATION
  Report Type: 
  Country: None (occurrence: None)
  Receive Date: 20040527
  Receipt Date: 20040515
  Transmission Date: 20050107
  Serious: Yes (Hospitalization)
  Sender: FDA-Public Use
  Company Number: USA-2003-0009431

PATIENT
  Age: 35 Year
  Sex: Female

DRUGS (7)
  1. MS CONTIN [Suspect]
     Indication: PAIN
     Dosage: 60 MG, BID, ORAL
     Route: 048
     Dates: start: 20000101, end: 20030601
  2. ZOLOFT [Concomitant]
  3. NEURONTIN [Concomitant]
  4. IBUPROFEN [Concomitant]
  5. EXCEDRIN (SALICYLAMIDE) [Concomitant]
  6. ZANTAC [Concomitant]
  7. CLIMARA [Concomitant]

REACTIONS (6)
  - BACK PAIN [None]
  - CONSTIPATION [None]
  - INTESTINAL PERFORATION [None]
  - PERITONITIS [None]
  - RENAL FAILURE [None]
  - ROAD TRAFFIC ACCIDENT [None]
